FAERS Safety Report 18544311 (Version 1)
Quarter: 2020Q4

REPORT INFORMATION
  Report Type: Spontaneous
  Country: SI (occurrence: SI)
  Receive Date: 20201125
  Receipt Date: 20201125
  Transmission Date: 20210114
  Serious: Yes (Death, Hospitalization, Other)
  Sender: FDA-Public Use
  Company Number: SI-ROCHE-2719827

PATIENT
  Age: 63 Year

DRUGS (1)
  1. CAPECITABINE. [Suspect]
     Active Substance: CAPECITABINE
     Indication: PRODUCT USED FOR UNKNOWN INDICATION
     Route: 048
     Dates: start: 20130426, end: 20130509

REACTIONS (17)
  - Ill-defined disorder [Unknown]
  - Haemodynamic instability [Unknown]
  - Diarrhoea [Unknown]
  - Mucosal inflammation [Unknown]
  - Ileus paralytic [Unknown]
  - Epidermolysis [Unknown]
  - Escherichia sepsis [Unknown]
  - Respiratory failure [Unknown]
  - Pyrexia [Unknown]
  - Erythema [Unknown]
  - Aspergillus infection [Unknown]
  - Multiple organ dysfunction syndrome [Fatal]
  - Asthenia [Unknown]
  - Mucosal haemorrhage [Unknown]
  - Stomatitis [Unknown]
  - Burning sensation [Unknown]
  - Pulmonary oedema [Unknown]

NARRATIVE: CASE EVENT DATE: 201305
